FAERS Safety Report 23329679 (Version 1)
Quarter: 2023Q4

REPORT INFORMATION
  Report Type: Spontaneous
  Country: NL (occurrence: NL)
  Receive Date: 20231222
  Receipt Date: 20231222
  Transmission Date: 20240110
  Serious: Yes (Life-Threatening)
  Sender: FDA-Public Use
  Company Number: NL-Daleco-2023-NL-000157

PATIENT
  Age: 42 Year
  Sex: Female

DRUGS (13)
  1. OLANZAPINE [Suspect]
     Active Substance: OLANZAPINE
     Indication: Product used for unknown indication
     Dosage: DAILY DOSE: 10 MILLIGRAM
  2. LORAZEPAM [Suspect]
     Active Substance: LORAZEPAM
     Indication: Product used for unknown indication
     Dosage: TID?DAILY DOSE: 3 MILLIGRAM
  3. TRANYLCYPROMINE SULFATE [Suspect]
     Active Substance: TRANYLCYPROMINE SULFATE
     Indication: Bipolar disorder
     Dosage: 30 MG, UNKNOWN
     Route: 048
     Dates: start: 2023
  4. TRANYLCYPROMINE SULFATE [Suspect]
     Active Substance: TRANYLCYPROMINE SULFATE
     Indication: Depression
     Dosage: 30 MG, UNKNOWN
     Route: 048
     Dates: start: 2023
  5. TRANYLCYPROMINE SULFATE [Suspect]
     Active Substance: TRANYLCYPROMINE SULFATE
     Indication: Bipolar disorder
     Route: 048
     Dates: start: 20231024
  6. TRANYLCYPROMINE SULFATE [Suspect]
     Active Substance: TRANYLCYPROMINE SULFATE
     Indication: Depression
     Route: 048
     Dates: start: 20231024
  7. TRANYLCYPROMINE SULFATE [Suspect]
     Active Substance: TRANYLCYPROMINE SULFATE
     Indication: Bipolar disorder
     Dosage: DAILY DOSE: 40 MILLIGRAM
     Route: 048
     Dates: start: 20231027
  8. TRANYLCYPROMINE SULFATE [Suspect]
     Active Substance: TRANYLCYPROMINE SULFATE
     Indication: Depression
     Dosage: DAILY DOSE: 40 MILLIGRAM
     Route: 048
     Dates: start: 20231027
  9. TRANYLCYPROMINE SULFATE [Suspect]
     Active Substance: TRANYLCYPROMINE SULFATE
     Indication: Bipolar disorder
     Dosage: 20 MG, BID?DAILY DOSE: 40 MILLIGRAM
     Route: 048
     Dates: start: 20231128
  10. TRANYLCYPROMINE SULFATE [Suspect]
     Active Substance: TRANYLCYPROMINE SULFATE
     Indication: Depression
     Dosage: 20 MG, BID?DAILY DOSE: 40 MILLIGRAM
     Route: 048
     Dates: start: 20231128
  11. TRANYLCYPROMINE SULFATE [Suspect]
     Active Substance: TRANYLCYPROMINE SULFATE
     Indication: Bipolar disorder
     Dosage: 17.5 MG, BID?DAILY DOSE: 35 MILLIGRAM
     Route: 048
  12. TRANYLCYPROMINE SULFATE [Suspect]
     Active Substance: TRANYLCYPROMINE SULFATE
     Indication: Depression
     Dosage: 17.5 MG, BID?DAILY DOSE: 35 MILLIGRAM
     Route: 048
  13. LAMOTRIGINE [Concomitant]
     Active Substance: LAMOTRIGINE
     Indication: Product used for unknown indication
     Dosage: DAILY DOSE: 200 MILLIGRAM

REACTIONS (3)
  - Hypertensive crisis [Recovering/Resolving]
  - Food interaction [Recovering/Resolving]
  - Contraindicated product administered [Unknown]

NARRATIVE: CASE EVENT DATE: 20231107
